FAERS Safety Report 13554552 (Version 1)
Quarter: 2017Q2

REPORT INFORMATION
  Report Type: Report from Study
  Country: AR (occurrence: AR)
  Receive Date: 20170517
  Receipt Date: 20170517
  Transmission Date: 20170830
  Serious: Yes (Hospitalization)
  Sender: FDA-Public Use
  Company Number: PHHY2017AR071797

PATIENT
  Sex: Male

DRUGS (1)
  1. DIOVAN [Suspect]
     Active Substance: VALSARTAN
     Indication: HYPERTENSION
     Dosage: 80 OT, UNK
     Route: 065

REACTIONS (4)
  - Choking [Unknown]
  - Chronic obstructive pulmonary disease [Recovered/Resolved]
  - Dyspnoea [Unknown]
  - Drug ineffective [Recovered/Resolved]
